FAERS Safety Report 23625076 (Version 2)
Quarter: 2024Q2

REPORT INFORMATION
  Report Type: Spontaneous
  Country: CH (occurrence: CH)
  Receive Date: 20240313
  Receipt Date: 20240617
  Transmission Date: 20240716
  Serious: Yes (Death, Hospitalization, Other)
  Sender: FDA-Public Use
  Company Number: None

PATIENT
  Age: 78 Year
  Sex: Male
  Weight: 120 kg

DRUGS (23)
  1. METHOTREXATE [Suspect]
     Active Substance: METHOTREXATE
     Indication: Psoriasis
     Dosage: STRENGTH: 2.5 MG ?2-0-3 AFTER MEALS
     Dates: end: 20240117
  2. COLCHICINE [Suspect]
     Active Substance: COLCHICINE
     Indication: Gouty arthritis
     Dates: start: 20231231, end: 20240117
  3. COLCHICINE [Suspect]
     Active Substance: COLCHICINE
     Dates: end: 202303
  4. CEFEPIME HYDROCHLORIDE [Suspect]
     Active Substance: CEFEPIME HYDROCHLORIDE
     Indication: Infection
     Dates: start: 20240117, end: 20240118
  5. ALDACTONE [Concomitant]
     Active Substance: SPIRONOLACTONE
  6. ALLOPURINOL [Concomitant]
     Active Substance: ALLOPURINOL
  7. ASS CARDIO SPIRIG HC [Concomitant]
  8. ATORVASTATIN [Concomitant]
     Active Substance: ATORVASTATIN
  9. DUTASTERIDE\TAMSULOSIN [Concomitant]
     Active Substance: DUTASTERIDE\TAMSULOSIN
     Dosage: 0.5/0.4.MG
  10. EUTHYROX [Concomitant]
     Active Substance: LEVOTHYROXINE SODIUM
     Indication: Hypothyroidism
  11. FOLIC ACID [Concomitant]
     Active Substance: FOLIC ACID
  12. NEBIVOLOL [Concomitant]
     Active Substance: NEBIVOLOL
  13. PANTOPRAZOLE SODIUM [Concomitant]
     Active Substance: PANTOPRAZOLE SODIUM
  14. PREGABALIN [Concomitant]
     Active Substance: PREGABALIN
  15. HERBALS\TROSPIUM [Concomitant]
     Active Substance: HERBALS\TROSPIUM
  16. TORSEMIDE [Concomitant]
     Active Substance: TORSEMIDE
  17. CHOLECALCIFEROL [Concomitant]
     Active Substance: CHOLECALCIFEROL
  18. DEXERYL [Concomitant]
  19. LACRI-VISION [Concomitant]
  20. POLYETHYLENE GLYCOL 3350\POTASSIUM CHLORIDE\SODIUM BICARBONATE\SODIUM [Concomitant]
     Active Substance: POLYETHYLENE GLYCOL 3350\POTASSIUM CHLORIDE\SODIUM BICARBONATE\SODIUM CHLORIDE
  21. MAGNESIUM ASPARTATE HYDROCHLORIDE [Concomitant]
     Active Substance: MAGNESIUM ASPARTATE HYDROCHLORIDE
  22. SYMBICORT [Concomitant]
     Active Substance: BUDESONIDE\FORMOTEROL FUMARATE DIHYDRATE
     Dosage: FREQUENCY: AS NECESSARY
  23. XYZAL [Concomitant]
     Active Substance: LEVOCETIRIZINE DIHYDROCHLORIDE
     Dosage: FREQUENCY: AS NECESSARY

REACTIONS (11)
  - Thrombocytopenia [Fatal]
  - Thrombotic microangiopathy [Fatal]
  - Pneumonia [Fatal]
  - Stomatitis haemorrhagic [Not Recovered/Not Resolved]
  - Toxicity to various agents [Unknown]
  - General physical health deterioration [Not Recovered/Not Resolved]
  - Adverse drug reaction [Unknown]
  - Colitis [Recovered/Resolved]
  - Disturbance in attention [Not Recovered/Not Resolved]
  - Toxicity to various agents [Not Recovered/Not Resolved]
  - Liver disorder [Not Recovered/Not Resolved]

NARRATIVE: CASE EVENT DATE: 20240101
